FAERS Safety Report 13845956 (Version 1)
Quarter: 2017Q3

REPORT INFORMATION
  Report Type: Spontaneous
  Country: US (occurrence: US)
  Receive Date: 20170808
  Receipt Date: 20170808
  Transmission Date: 20171127
  Serious: No
  Sender: FDA-Public Use
  Company Number: US-ROCHE-730351

PATIENT
  Sex: Female

DRUGS (1)
  1. BONIVA [Suspect]
     Active Substance: IBANDRONATE SODIUM
     Indication: PRODUCT USED FOR UNKNOWN INDICATION
     Dosage: FORM: PILLS
     Route: 065

REACTIONS (4)
  - Oropharyngeal pain [Unknown]
  - Dysphagia [Unknown]
  - Wrong technique in product usage process [Unknown]
  - Choking [Unknown]

NARRATIVE: CASE EVENT DATE: 20100920
